FAERS Safety Report 5422581-1 (Version None)
Quarter: 2007Q3

REPORT INFORMATION
  Report Type: 
  Country: None (occurrence: None)
  Receive Date: 20070822
  Receipt Date: 20070813
  Transmission Date: 20080115
  Serious: Yes (Hospitalization)
  Sender: FDA-Public Use
  Company Number: US-AMGEN-STX238660

PATIENT
  Sex: Female

DRUGS (1)
  1. ENBREL [Suspect]
     Indication: PSORIATIC ARTHROPATHY
     Route: 058
     Dates: start: 20030601, end: 20070809

REACTIONS (5)
  - INCISION SITE ERYTHEMA [None]
  - LISTLESS [None]
  - MASTECTOMY [None]
  - POSTOPERATIVE WOUND INFECTION [None]
  - VOMITING [None]
